FAERS Safety Report 9334964 (Version 1)
Quarter: 2013Q2

REPORT INFORMATION
  Report Type: Spontaneous
  Country: US (occurrence: US)
  Receive Date: 20130606
  Receipt Date: 20130606
  Transmission Date: 20140414
  Serious: No
  Sender: FDA-Public Use
  Company Number: US-AMGEN-USASP2013032903

PATIENT
  Sex: Male
  Weight: 83.1 kg

DRUGS (10)
  1. XGEVA [Suspect]
     Indication: BONE DISORDER
     Dosage: 120 MG, Q4WK
     Route: 058
     Dates: start: 201104
  2. CALCIUM [Concomitant]
     Dosage: 1000 MG, QD
     Route: 048
  3. VITAMIN D                          /00107901/ [Concomitant]
     Dosage: 400 IU, QD
     Route: 048
  4. LEUPROLIDE                         /00726901/ [Concomitant]
     Indication: PROSTATE CANCER
     Dosage: 30 MG, Q4MO
     Route: 030
  5. ABIRATERONE [Concomitant]
     Indication: PROSTATE CANCER
     Dosage: 1000 MG, QD
     Route: 048
  6. PREDNISONE [Concomitant]
     Indication: PROSTATE CANCER
     Dosage: 5 MG, BID
     Route: 048
  7. ATORVASTATIN [Concomitant]
     Dosage: 20 MG, UNK
     Route: 048
  8. BUMETANIDE [Concomitant]
     Dosage: 1 MG, QD
     Route: 048
  9. VITAMIN B6 [Concomitant]
     Dosage: 1 TABLET, QD
     Route: 048
  10. VITAMIN B12                        /00056201/ [Concomitant]
     Dosage: 1 TABLET, QD
     Route: 048

REACTIONS (1)
  - Hypocalcaemia [Recovered/Resolved]
